FAERS Safety Report 6234925-1 (Version None)
Quarter: 2009Q2

REPORT INFORMATION
  Report Type: 
  Country: None (occurrence: None)
  Receive Date: 20090618
  Receipt Date: 20090611
  Transmission Date: 20091009
  Serious: Yes (Other)
  Sender: FDA-Public Use
  Company Number: A0791827A

PATIENT
  Age: 44 Year
  Sex: Female
  Weight: 111.4 kg

DRUGS (14)
  1. WELLBUTRIN XL [Suspect]
     Indication: DEPRESSION
     Dosage: 150MG PER DAY
     Route: 048
     Dates: start: 20040101
  2. ADVAIR HFA [Suspect]
     Indication: BRONCHITIS
     Dosage: 1PUFF TWICE PER DAY
     Route: 055
     Dates: start: 20090201
  3. PRIMIDONE [Suspect]
     Indication: EPILEPSY
     Dosage: 250G UNKNOWN
     Route: 048
     Dates: start: 20010101
  4. METFORMIN HCL [Suspect]
     Indication: BLOOD TESTOSTERONE ABNORMAL
     Dosage: 500MG TWICE PER DAY
     Route: 048
     Dates: start: 20040101
  5. LITHIUM CARBONATE [Suspect]
     Dosage: 300MG TWICE PER DAY
     Route: 048
     Dates: start: 20040101
  6. ESTRADIOL [Suspect]
     Indication: HYSTERECTOMY
     Dosage: 2MG TWICE PER DAY
     Route: 048
     Dates: start: 20060101
  7. DICYCLOMINE [Suspect]
     Dosage: 10MG FOUR TIMES PER DAY
     Route: 048
     Dates: start: 20070101
  8. RELPAX [Suspect]
     Indication: MIGRAINE
     Dosage: 20MG AT NIGHT
     Route: 048
     Dates: start: 20030101
  9. PREVACID [Suspect]
     Dosage: 30MG TWICE PER DAY
     Route: 048
     Dates: start: 20030101
  10. BUPROPION HCL [Suspect]
     Indication: SEASONAL AFFECTIVE DISORDER
     Dosage: 75MG PER DAY
     Route: 048
     Dates: start: 20010101
  11. CLOTRIMAZOLE [Suspect]
     Dates: start: 20070101
  12. FUNGOID TINCTURE [Suspect]
     Route: 061
     Dates: start: 20080101
  13. XOPENEX [Suspect]
     Dosage: 1PUFF AT NIGHT
     Route: 055
     Dates: start: 20080601
  14. CARAFATE [Suspect]
     Dosage: 1G FOUR TIMES PER DAY
     Route: 048
     Dates: start: 20080101

REACTIONS (6)
  - AURICULAR SWELLING [None]
  - BLINDNESS TRANSIENT [None]
  - DEAFNESS TRANSITORY [None]
  - FEELING ABNORMAL [None]
  - HYPERACUSIS [None]
  - LOSS OF CONSCIOUSNESS [None]
